FAERS Safety Report 4889039-X (Version None)
Quarter: 2005Q4

REPORT INFORMATION
  Report Type: 
  Country: None (occurrence: None)
  Receive Date: 20051215
  Receipt Date: 20041214
  Transmission Date: 20060501
  Serious: Yes (Other)
  Sender: FDA-Public Use
  Company Number: 2004116193

PATIENT
  Age: 76 Year
  Sex: Female
  Weight: 56.6996 kg

DRUGS (1)
  1. BEXTRA [Suspect]
     Indication: ARTHRITIS
     Dosage: (1 IN 1 D),ORAL
     Route: 048
     Dates: start: 20010101, end: 20041101

REACTIONS (3)
  - BLISTER [None]
  - COLITIS ULCERATIVE [None]
  - RECTAL HAEMORRHAGE [None]
